FAERS Safety Report 4753067-5 (Version None)
Quarter: 2005Q3

REPORT INFORMATION
  Report Type: 
  Country: None (occurrence: None)
  Receive Date: 20050826
  Receipt Date: 20050818
  Transmission Date: 20060218
  Serious: Yes (Hospitalization)
  Sender: FDA-Public Use
  Company Number: FR-MERCK-0508FRA00034

PATIENT
  Age: 50 Year
  Sex: Male

DRUGS (7)
  1. SINGULAIR [Suspect]
     Indication: ASTHMA
     Route: 048
     Dates: start: 20020101, end: 20040801
  2. SINGULAIR [Suspect]
     Route: 048
     Dates: start: 20050601, end: 20050817
  3. FLUTICASONE PROPIONATE AND SALMETEROL XINAFOATE [Concomitant]
     Indication: ASTHMA
     Route: 055
  4. URSODIOL [Concomitant]
     Indication: HEPATITIS CHOLESTATIC
     Route: 048
  5. TRIMEBUTINE MALEATE [Concomitant]
     Indication: INTESTINAL FUNCTIONAL DISORDER
     Route: 048
  6. INSULIN [Concomitant]
     Indication: DIABETES MELLITUS
     Route: 058
  7. TRIPTORELIN [Concomitant]
     Indication: PROSTATE CANCER
     Route: 058

REACTIONS (1)
  - ALLERGIC GRANULOMATOUS ANGIITIS [None]
